FAERS Safety Report 5018745-1 (Version None)
Quarter: 2006Q2

REPORT INFORMATION
  Report Type: 
  Country: None (occurrence: None)
  Receive Date: 20060526
  Receipt Date: 20060515
  Transmission Date: 20061013
  Serious: Yes (Hospitalization)
  Sender: FDA-Public Use
  Company Number: 200610743BWH

PATIENT
  Age: 71 Year
  Sex: Female

DRUGS (4)
  1. NEXAVAR [Suspect]
     Indication: RENAL CELL CARCINOMA STAGE UNSPECIFIED
     Dosage: 400 MG, BID, ORAL
     Route: 048
     Dates: start: 20060114, end: 20060101
  2. TYLENOL (CAPLET) [Concomitant]
  3. PERCOCET [Concomitant]
  4. VICODIN [Concomitant]

REACTIONS (12)
  - ALOPECIA [None]
  - ASTHENIA [None]
  - BACK PAIN [None]
  - DYSPEPSIA [None]
  - GALLBLADDER DISORDER [None]
  - GINGIVITIS [None]
  - HYPERTENSION [None]
  - NAUSEA [None]
  - PRURITUS [None]
  - RASH [None]
  - SWELLING FACE [None]
  - VOMITING [None]
